FAERS Safety Report 7923970-3 (Version None)
Quarter: 2011Q4

REPORT INFORMATION
  Report Type: 
  Country: None (occurrence: None)
  Receive Date: 20111117
  Receipt Date: 20110211
  Transmission Date: 20120403
  Serious: No
  Sender: FDA-Public Use
  Company Number: US-AMGEN-USASP2011008383

PATIENT
  Sex: Male

DRUGS (1)
  1. ENBREL [Suspect]
     Indication: RHEUMATOID ARTHRITIS
     Dosage: 50 MG, QWK
     Dates: start: 20100101

REACTIONS (6)
  - PHOTOPHOBIA [None]
  - PROSTATE INFECTION [None]
  - IMPAIRED HEALING [None]
  - CYSTITIS [None]
  - HEADACHE [None]
  - VISION BLURRED [None]
